FAERS Safety Report 26066144 (Version 1)
Quarter: 2025Q4

REPORT INFORMATION
  Report Type: Report from Study
  Country: US (occurrence: US)
  Receive Date: 20251119
  Receipt Date: 20251119
  Transmission Date: 20260118
  Serious: Yes (Hospitalization)
  Sender: BIOGEN
  Company Number: US-BIOGEN-2091062

PATIENT
  Age: 46 Year
  Sex: Female

DRUGS (1)
  1. SKYCLARYS [Suspect]
     Active Substance: OMAVELOXOLONE
     Indication: Friedreich^s ataxia

REACTIONS (6)
  - Ear discomfort [Unknown]
  - Headache [Unknown]
  - Hypoacusis [Unknown]
  - Tinnitus [Unknown]
  - Balance disorder [Unknown]
  - Vomiting [Unknown]
